FAERS Safety Report 6608636-4 (Version None)
Quarter: 2010Q1

REPORT INFORMATION
  Report Type: 
  Country: None (occurrence: None)
  Receive Date: 20100226
  Receipt Date: 20100226
  Transmission Date: 20100710
  Serious: No
  Sender: FDA-Public Use
  Company Number: None

PATIENT
  Age: 24 Year
  Sex: Male
  Weight: 84.8226 kg

DRUGS (5)
  1. ARIPIPRAZOLE [Suspect]
     Dosage: 15MG PO
     Route: 048
  2. MULTI-VITAMIN [Concomitant]
  3. LORATADINE [Concomitant]
  4. AMBIEN [Concomitant]
  5. TUMS [Concomitant]

REACTIONS (1)
  - CHEST PAIN [None]
